FAERS Safety Report 14330928 (Version 1)
Quarter: 2017Q4

REPORT INFORMATION
  Report Type: Spontaneous
  Country: CH (occurrence: CH)
  Receive Date: 20171228
  Receipt Date: 20171228
  Transmission Date: 20180321
  Serious: Yes (Other)
  Sender: FDA-Public Use
  Company Number: CH-TEVA-2017-CH-836215

PATIENT
  Sex: Male

DRUGS (22)
  1. URSOFALK [Concomitant]
     Active Substance: URSODIOL
  2. MAGNESIUM DIASPORAL [Concomitant]
     Active Substance: MAGNESIUM
  3. VIAGRA [Concomitant]
     Active Substance: SILDENAFIL CITRATE
     Dates: start: 201608, end: 201702
  4. CIALIS [Suspect]
     Active Substance: TADALAFIL
     Dates: start: 201411, end: 201604
  5. PREDNISON [Concomitant]
     Active Substance: PREDNISONE
  6. GABAPENTIN MEPHA 400 [Suspect]
     Active Substance: GABAPENTIN
     Dosage: 600 MILLIGRAM DAILY;
     Dates: start: 201603
  7. BETMIGA [Interacting]
     Active Substance: MIRABEGRON
     Dosage: 50 MILLIGRAM DAILY;
     Dates: start: 201702
  8. BELOC ZOK [Interacting]
     Active Substance: METOPROLOL SUCCINATE
     Dosage: 100 MILLIGRAM DAILY;
     Dates: start: 2014, end: 201603
  9. PANTOPRAZOL [Concomitant]
     Active Substance: PANTOPRAZOLE SODIUM
  10. TRIATEC [Concomitant]
     Active Substance: RAMIPRIL
  11. LIPANTHYL [Concomitant]
     Active Substance: FENOFIBRATE
     Dosage: 200 MILLIGRAM DAILY;
     Dates: start: 201604, end: 20170616
  12. ACTEMRA [Suspect]
     Active Substance: TOCILIZUMAB
     Dates: start: 20160902, end: 20170912
  13. SANDIMMUN [Concomitant]
     Active Substance: CYCLOSPORINE
  14. XARELTO [Concomitant]
     Active Substance: RIVAROXABAN
  15. BETMIGA [Interacting]
     Active Substance: MIRABEGRON
     Dates: start: 201608, end: 201611
  16. BELOC ZOK [Interacting]
     Active Substance: METOPROLOL SUCCINATE
     Dosage: 150 MILLIGRAM DAILY;
     Dates: start: 201603, end: 20170616
  17. NOPIL FORTE TABLETTEN [Concomitant]
     Active Substance: SULFAMETHOXAZOLE\TRIMETHOPRIM
  18. SELIPRAN [Concomitant]
     Active Substance: PRAVASTATIN SODIUM
  19. JANUVIA [Concomitant]
     Active Substance: SITAGLIPTIN PHOSPHATE
  20. VALTREX [Concomitant]
     Active Substance: VALACYCLOVIR HYDROCHLORIDE
  21. FLUCONAZOL [Concomitant]
     Active Substance: FLUCONAZOLE
  22. TOREM [Concomitant]
     Active Substance: TORSEMIDE

REACTIONS (2)
  - Drug interaction [Recovered/Resolved]
  - Dyspnoea [Recovered/Resolved with Sequelae]

NARRATIVE: CASE EVENT DATE: 2016
